FAERS Safety Report 5176241-5 (Version None)
Quarter: 2006Q4

REPORT INFORMATION
  Report Type: 
  Country: None (occurrence: None)
  Receive Date: 20061215
  Receipt Date: 20060622
  Transmission Date: 20070319
  Serious: No
  Sender: FDA-Public Use
  Company Number: US-AMGEN-KDL184146

PATIENT
  Sex: Male

DRUGS (1)
  1. ENBREL [Suspect]
     Indication: ANKYLOSING SPONDYLITIS
     Route: 058
     Dates: start: 20060315

REACTIONS (4)
  - GINGIVAL SWELLING [None]
  - INJECTION SITE PAIN [None]
  - INJECTION SITE REACTION [None]
  - TOOTHACHE [None]
